FAERS Safety Report 8936759 (Version 1)
Quarter: 2012Q4

REPORT INFORMATION
  Report Type: 
  Country: US (occurrence: US)
  Receive Date: 20121130
  Receipt Date: 20121130
  Transmission Date: 20130627
  Serious: No
  Sender: FDA-Public Use
  Company Number: US-009507513-1211USA012862

PATIENT
  Age: 8 Year
  Sex: Male

DRUGS (1)
  1. CLARITIN REDITABS [Suspect]
     Indication: ALLERGY TO ANIMAL
     Dosage: 10 mg, bid
     Route: 048
     Dates: start: 20121014

REACTIONS (1)
  - Overdose [Recovering/Resolving]
